FAERS Safety Report 9224282 (Version 1)
Quarter: 2013Q1

REPORT INFORMATION
  Report Type: Spontaneous
  Country: US (occurrence: None)
  Receive Date: 20120910
  Receipt Date: 20120910
  Transmission Date: 20140127
  Serious: No
  Sender: FDA-Public Use
  Company Number: 1207USA011245

PATIENT
  Age: 29 Year
  Sex: Male

DRUGS (2)
  1. ZIOPTAN (TAFLUPROST) EYE DROPS, SOLUTION, 0.0015% [Suspect]
     Indication: GLAUCOMA
     Route: 047
     Dates: start: 201205
  2. PERCOCET ( ACETAMINOPHEN, OXYCODONE HYDROCHLORIDE) [Concomitant]

REACTIONS (4)
  - Nasal discomfort [None]
  - Sinus headache [None]
  - Sinusitis [None]
  - Vision blurred [None]
